FAERS Safety Report 8094073-5 (Version None)
Quarter: 2012Q1

REPORT INFORMATION
  Report Type: 
  Country: None (occurrence: None)
  Receive Date: 20120131
  Receipt Date: 20120120
  Transmission Date: 20120608
  Serious: Yes (Death)
  Sender: FDA-Public Use
  Company Number: JP-ASTELLAS-2011JP009466

PATIENT
  Age: 88 Year
  Sex: Female

DRUGS (1)
  1. FUNGUARD [Suspect]
     Dosage: 50 MG, UNKNOWN/D
     Route: 041
     Dates: start: 20111203, end: 20111208

REACTIONS (1)
  - CONVULSION [None]
